FAERS Safety Report 12135986 (Version 2)
Quarter: 2016Q1

REPORT INFORMATION
  Report Type: Spontaneous
  Country: IT (occurrence: IT)
  Receive Date: 20160302
  Receipt Date: 20160311
  Transmission Date: 20160526
  Serious: Yes (Other)
  Sender: FDA-Public Use
  Company Number: IT-ROCHE-1719274

PATIENT
  Age: 57 Year
  Sex: Female

DRUGS (7)
  1. ESKIM [Concomitant]
     Active Substance: OMEGA-3 FATTY ACIDS
  2. SALAZOPYRIN EN-TABS [Concomitant]
     Active Substance: SULFASALAZINE
  3. SIMVASTATIN. [Concomitant]
     Active Substance: SIMVASTATIN
  4. DIBASE [Concomitant]
     Active Substance: CHOLECALCIFEROL
  5. LANSOPRAZOLE. [Concomitant]
     Active Substance: LANSOPRAZOLE
  6. ROACTEMRA [Suspect]
     Active Substance: TOCILIZUMAB
     Indication: RHEUMATOID ARTHRITIS
     Route: 058
     Dates: start: 20150225, end: 20160222
  7. CIPRALEX [Concomitant]
     Active Substance: ESCITALOPRAM OXALATE

REACTIONS (2)
  - Eyelid ptosis [Unknown]
  - Pyramidal tract syndrome [Unknown]

NARRATIVE: CASE EVENT DATE: 20160222
